FAERS Safety Report 13896450 (Version 1)
Quarter: 2017Q3

REPORT INFORMATION
  Report Type: Spontaneous
  Country: GB (occurrence: GB)
  Receive Date: 20170823
  Receipt Date: 20170823
  Transmission Date: 20171127
  Serious: Yes (Hospitalization, Other)
  Sender: FDA-Public Use
  Company Number: GB-TEVA-797650ACC

PATIENT
  Age: 21 Year
  Sex: Male
  Weight: 100 kg

DRUGS (5)
  1. OFLOXACIN. [Suspect]
     Active Substance: OFLOXACIN
     Indication: ORCHITIS
     Dosage: 400 MILLIGRAM DAILY;
     Route: 048
     Dates: start: 20170206, end: 20170711
  2. PRAZOSIN. [Concomitant]
     Active Substance: PRAZOSIN
     Dosage: .5 MILLIGRAM DAILY;
     Route: 048
  3. CARBAMAZEPINE. [Concomitant]
     Active Substance: CARBAMAZEPINE
     Dosage: 100 MILLIGRAM DAILY;
     Route: 048
  4. AMITRIPTYLINE [Concomitant]
     Active Substance: AMITRIPTYLINE
     Indication: DEPRESSION
     Dosage: 10 MILLIGRAM DAILY;
     Route: 048
  5. FLUOXETINE [Concomitant]
     Active Substance: FLUOXETINE HYDROCHLORIDE
     Dosage: 40 MILLIGRAM DAILY;
     Route: 048

REACTIONS (4)
  - Headache [Recovered/Resolved]
  - Dizziness [Recovered/Resolved]
  - Vision blurred [Recovered/Resolved]
  - Loss of consciousness [Recovered/Resolved]

NARRATIVE: CASE EVENT DATE: 20170710
